FAERS Safety Report 5760195-4 (Version None)
Quarter: 2008Q2

REPORT INFORMATION
  Report Type: 
  Country: None (occurrence: None)
  Receive Date: 20080605
  Receipt Date: 20080526
  Transmission Date: 20081010
  Serious: Yes (Hospitalization)
  Sender: FDA-Public Use
  Company Number: FR-ABBOTT-08P-056-0453790-00

PATIENT
  Age: 55 Year
  Sex: Male

DRUGS (2)
  1. HUMIRA [Suspect]
     Indication: RHEUMATOID ARTHRITIS
     Route: 058
     Dates: end: 20080401
  2. HUMIRA [Suspect]
     Indication: ANALGESIC INTERVENTION SUPPORTIVE THERAPY

REACTIONS (2)
  - PANCREATITIS [None]
  - TRANSAMINASES INCREASED [None]
